FAERS Safety Report 10034076 (Version 1)
Quarter: 2014Q1

REPORT INFORMATION
  Report Type: Spontaneous
  Country: DE (occurrence: None)
  Receive Date: 20140320
  Receipt Date: 20140320
  Transmission Date: 20141002
  Serious: Yes (Hospitalization)
  Sender: FDA-Public Use
  Company Number: AUR-APL-2014-02722

PATIENT
  Age: 49 Year
  Sex: Male
  Weight: 108 kg

DRUGS (5)
  1. GABAPENTIN [Suspect]
     Indication: POLYNEUROPATHY
     Dosage: 600 MG (200 MG, 3 IN 1 D), ORAL
     Route: 048
     Dates: end: 20140119
  2. SIMVASTATIN (SIMVASTATIN) [Concomitant]
  3. JANUMETN (RISTFOR) [Concomitant]
  4. LEVEMIR (INSULIN DETEMIR) [Concomitant]
  5. ACTRAPID (INSULIN HUMAN) [Concomitant]

REACTIONS (4)
  - Liver function test abnormal [None]
  - Ocular icterus [None]
  - Drug-induced liver injury [None]
  - Biopsy liver abnormal [None]
